FAERS Safety Report 4401136-1 (Version None)
Quarter: 2004Q3

REPORT INFORMATION
  Report Type: 
  Country: None (occurrence: None)
  Receive Date: 20040907
  Receipt Date: 20031113
  Transmission Date: 20050211
  Serious: Yes (Other)
  Sender: FDA-Public Use
  Company Number: US-BRISTOL-MYERS SQUIBB COMPANY-12434817

PATIENT
  Age: 72 Year
  Sex: Female
  Weight: 79 kg

DRUGS (5)
  1. COUMADIN [Suspect]
     Indication: TRANSIENT ISCHAEMIC ATTACK
     Dosage: INITIAL DOSE: 5MG ONCE DAILY; STOPPED ON 10-NOV-2003; TO RESUME 13-NOV-2003 TO 2.5MG.
     Route: 048
     Dates: start: 20030901
  2. DARVOCET [Concomitant]
  3. TYLENOL W/ CODEINE [Concomitant]
  4. THYROID TAB [Concomitant]
  5. ATENOLOL [Concomitant]

REACTIONS (3)
  - ARTHRALGIA [None]
  - INTERNATIONAL NORMALISED RATIO ABNORMAL [None]
  - JOINT SWELLING [None]
